FAERS Safety Report 23057580 (Version 2)
Quarter: 2024Q1

REPORT INFORMATION
  Report Type: Spontaneous
  Country: NZ (occurrence: NZ)
  Receive Date: 20231012
  Receipt Date: 20240103
  Transmission Date: 20240410
  Serious: Yes (Other)
  Sender: FDA-Public Use
  Company Number: NZ-BoehringerIngelheim-2023-BI-266303

PATIENT
  Age: 73 Year
  Sex: Female
  Weight: 83 kg

DRUGS (1)
  1. JARDIANCE [Suspect]
     Active Substance: EMPAGLIFLOZIN
     Indication: Diabetes mellitus
     Dates: start: 20230830, end: 20230915

REACTIONS (3)
  - Candida infection [Recovered/Resolved]
  - Urinary tract infection [Recovered/Resolved]
  - Emotional distress [Unknown]
